FAERS Safety Report 9049223 (Version 3)
Quarter: 2013Q1

REPORT INFORMATION
  Report Type: Report from Study
  Country: IT (occurrence: IT)
  Receive Date: 20130205
  Receipt Date: 20130313
  Transmission Date: 20140127
  Serious: Yes (Hospitalization)
  Sender: FDA-Public Use
  Company Number: IT-ROCHE-1186326

PATIENT
  Age: 55 None
  Sex: Female
  Weight: 67 kg

DRUGS (3)
  1. PERTUZUMAB [Suspect]
     Indication: BREAST CANCER
     Dosage: UNIT - MG/TOT, MOST RECENT DOSE 07/JAN/2013
     Route: 042
     Dates: start: 20121212
  2. TRASTUZUMAB [Suspect]
     Indication: BREAST CANCER
     Dosage: UNIT - MG/TOT, MOST RECENT DOSE 07/JAN/2013
     Route: 042
     Dates: start: 20121212
  3. DOCETAXEL [Suspect]
     Indication: BREAST CANCER
     Dosage: UNIT - MG/TOT, MOST RECENT DOSE 07/JAN/2013
     Route: 042
     Dates: start: 20121212

REACTIONS (1)
  - Pleural effusion [Recovered/Resolved]
